FAERS Safety Report 6359416-9 (Version None)
Quarter: 2009Q3

REPORT INFORMATION
  Report Type: 
  Country: None (occurrence: None)
  Receive Date: 20090917
  Receipt Date: 20090911
  Transmission Date: 20100115
  Serious: Yes (Death, Hospitalization)
  Sender: FDA-Public Use
  Company Number: JP-BAYER-200912857BYL

PATIENT
  Age: 66 Year
  Sex: Male
  Weight: 53 kg

DRUGS (12)
  1. NEXAVAR [Suspect]
     Indication: HEPATIC NEOPLASM MALIGNANT
     Dosage: TOTAL DAILY DOSE: 800 MG  UNIT DOSE: 200 MG
     Route: 048
     Dates: start: 20090629, end: 20090721
  2. NEXAVAR [Suspect]
     Dosage: UNIT DOSE: 200 MG
     Route: 048
     Dates: start: 20090722, end: 20090730
  3. RHYTHMY [Concomitant]
     Indication: INSOMNIA
     Dosage: SINCE BEFORE ADMINISTRATION
     Route: 048
  4. GLYCYRON [Concomitant]
     Dosage: SINCE BEFORE ADMINISTRATION
     Route: 048
  5. URSO 250 [Concomitant]
     Dosage: SINCE BEFORE ADMINISTRATION
     Route: 048
  6. PROHEPARUM [Concomitant]
     Dosage: SINCE BEFORE ADMINISTRATION
     Route: 048
  7. MONILAC [Concomitant]
     Dosage: SINCE BEFORE ADMINISTRATION
     Route: 048
  8. PARIET [Concomitant]
     Dosage: SINCE BEFORE ADMINISTRATION
     Route: 048
  9. ALDACTONE [Concomitant]
     Dosage: SINCE BEFORE ADMINISTRATION
     Route: 048
  10. FLOMOX [Concomitant]
     Route: 048
     Dates: start: 20090704, end: 20090709
  11. HYPEN [Concomitant]
     Route: 048
     Dates: start: 20090709
  12. FOY [Concomitant]
     Indication: DISSEMINATED INTRAVASCULAR COAGULATION
     Route: 065
     Dates: start: 20090810

REACTIONS (4)
  - DIARRHOEA [None]
  - HEPATIC FUNCTION ABNORMAL [None]
  - HEPATIC NEOPLASM MALIGNANT [None]
  - RASH [None]
